FAERS Safety Report 19581170 (Version 1)
Quarter: 2021Q3

REPORT INFORMATION
  Report Type: Spontaneous
  Country: US (occurrence: US)
  Receive Date: 20210719
  Receipt Date: 20210719
  Transmission Date: 20211014
  Serious: No
  Sender: FDA-Public Use
  Company Number: US-NOVOPROD-812573

PATIENT
  Sex: Female

DRUGS (1)
  1. OZEMPIC [Suspect]
     Active Substance: SEMAGLUTIDE
     Indication: DIABETES MELLITUS
     Dosage: 0.5 MG, QW

REACTIONS (10)
  - Dry mouth [Unknown]
  - Blood pressure increased [Unknown]
  - Injection site reaction [Not Recovered/Not Resolved]
  - Blood glucose decreased [Recovered/Resolved]
  - Injection site pain [Unknown]
  - Incorrect dose administered by device [Unknown]
  - Device malfunction [Unknown]
  - Dizziness [Unknown]
  - Injection site erythema [Not Recovered/Not Resolved]
  - Injection site extravasation [Unknown]
